FAERS Safety Report 5215868-9 (Version None)
Quarter: 2007Q1

REPORT INFORMATION
  Report Type: 
  Country: None (occurrence: None)
  Receive Date: 20070123
  Receipt Date: 20070119
  Transmission Date: 20070707
  Serious: Yes (Hospitalization)
  Sender: FDA-Public Use
  Company Number: FR-GLAXOSMITHKLINE-B0454841A

PATIENT
  Age: 69 Year
  Sex: Female

DRUGS (2)
  1. AUGMENTIN '125' [Suspect]
     Dosage: 2G PER DAY
     Route: 048
     Dates: start: 20060412, end: 20060417
  2. MESALAZINE [Concomitant]
     Route: 048

REACTIONS (4)
  - CUTANEOUS VASCULITIS [None]
  - HISTOLOGY ABNORMAL [None]
  - OEDEMA PERIPHERAL [None]
  - RASH ERYTHEMATOUS [None]
